FAERS Safety Report 20249312 (Version 3)
Quarter: 2022Q1

REPORT INFORMATION
  Report Type: Report from Study
  Country: AR (occurrence: AR)
  Receive Date: 20211229
  Receipt Date: 20220113
  Transmission Date: 20220424
  Serious: No
  Sender: FDA-Public Use
  Company Number: AR-NOVARTISPH-NVSC2021AR296564

PATIENT
  Age: 2 Year

DRUGS (1)
  1. ZOLGENSMA [Suspect]
     Active Substance: ONASEMNOGENE ABEPARVOVEC-XIOI
     Indication: Product used for unknown indication
     Dosage: UNK, ONCE/SINGLE
     Route: 065
     Dates: start: 20211216

REACTIONS (1)
  - Gingivitis [Recovered/Resolved]

NARRATIVE: CASE EVENT DATE: 20211218
